FAERS Safety Report 9192407 (Version 1)
Quarter: 2013Q1

REPORT INFORMATION
  Report Type: Spontaneous
  Country: US (occurrence: None)
  Receive Date: 20120703
  Receipt Date: 20120703
  Transmission Date: 20140127
  Serious: Yes (Other)
  Sender: FDA-Public Use
  Company Number: PHEH2012US005420

PATIENT
  Age: 56 Year
  Sex: Female

DRUGS (7)
  1. GILENYA (FTY)CAPSULE, 0.5 MG [Suspect]
     Indication: MULTIPLE SCLEROSIS
     Route: 048
     Dates: start: 201109, end: 201112
  2. ELAVIL (AMITRIPTYLINE HYDROCHLORIDE) [Concomitant]
  3. ALTACE (RAMIPRIL) [Concomitant]
  4. CRESTOR (ROSUVASTATIN CALCIUM) [Concomitant]
  5. CYBALTA (DULOXETINE HYDROCHLORIDE) [Concomitant]
  6. ASA (ACETYLSALICYLIC ACID) [Concomitant]
  7. AMANTADINE (AMANTADINE) [Concomitant]

REACTIONS (3)
  - Macular oedema [None]
  - Breast cyst [None]
  - Visual acuity reduced [None]
